FAERS Safety Report 6929805-X (Version None)
Quarter: 2010Q3

REPORT INFORMATION
  Report Type: 
  Country: None (occurrence: None)
  Receive Date: 20100817
  Receipt Date: 20100817
  Transmission Date: 20110219
  Serious: Yes (Other)
  Sender: FDA-Public Use
  Company Number: None

PATIENT
  Sex: Female
  Weight: 77.3 kg

DRUGS (1)
  1. ZINC 50 MG. REXALL SUNDOWN INC. [Suspect]
     Indication: UPPER RESPIRATORY TRACT INFECTION
     Dosage: 50 MG. ONCE ORAL
     Route: 048
     Dates: start: 20100705

REACTIONS (4)
  - ABDOMINAL PAIN [None]
  - DIARRHOEA [None]
  - FATIGUE [None]
  - FLUSHING [None]
